FAERS Safety Report 7214516-6 (Version None)
Quarter: 2010Q4

REPORT INFORMATION
  Report Type: 
  Country: None (occurrence: None)
  Receive Date: 20101126
  Receipt Date: 20091111
  Transmission Date: 20110411
  Serious: Yes (Other)
  Sender: FDA-Public Use
  Company Number: WAES 0709USA03002

PATIENT
  Age: 68 Year

DRUGS (5)
  1. FOSAMAX [Suspect]
     Indication: OSTEOPOROSIS
     Dosage: 70 MG/PO
     Route: 048
     Dates: start: 20030310, end: 20060101
  2. FOSAMAX [Suspect]
     Indication: TOOTHACHE
     Dosage: 70 MG/PO
     Route: 048
     Dates: start: 20030310, end: 20060101
  3. ZOCOR [Concomitant]
  4. BENAZEPRIL HYDROCHLORIDE [Concomitant]
  5. PREDNISONE TAB [Concomitant]

REACTIONS (2)
  - OSTEOMYELITIS [None]
  - OSTEONECROSIS [None]
